FAERS Safety Report 11061527 (Version 1)
Quarter: 2015Q2

REPORT INFORMATION
  Report Type: Spontaneous
  Country: US (occurrence: None)
  Receive Date: 20150423
  Receipt Date: 20150423
  Transmission Date: 20150821
  Serious: Yes (Disabling)
  Sender: FDA-Public Use
  Company Number: None

PATIENT
  Age: 65 Year
  Sex: Female
  Weight: 65.77 kg

DRUGS (2)
  1. AMITIZA [Suspect]
     Active Substance: LUBIPROSTONE
     Indication: IRRITABLE BOWEL SYNDROME
     Route: 048
     Dates: start: 20150412, end: 20150416
  2. 112 MC SYNTHROID [Concomitant]

REACTIONS (15)
  - Confusional state [None]
  - Abdominal distension [None]
  - Feeling abnormal [None]
  - Joint swelling [None]
  - Road traffic accident [None]
  - Abdominal pain upper [None]
  - Joint effusion [None]
  - Depressed mood [None]
  - Renal disorder [None]
  - Dyspnoea [None]
  - Arthralgia [None]
  - Tendon rupture [None]
  - Gout [None]
  - Chest discomfort [None]
  - Chills [None]

NARRATIVE: CASE EVENT DATE: 20150412
